FAERS Safety Report 18975522 (Version 2)
Quarter: 2021Q2

REPORT INFORMATION
  Report Type: Report from Study
  Country: US (occurrence: US)
  Receive Date: 20210305
  Receipt Date: 20210423
  Transmission Date: 20210717
  Serious: No
  Sender: FDA-Public Use
  Company Number: NVSC2021US045795

PATIENT
  Sex: Female

DRUGS (1)
  1. COSENTYX [Suspect]
     Active Substance: SECUKINUMAB
     Indication: PSORIASIS
     Dosage: 300 MG, QW
     Route: 058

REACTIONS (7)
  - Blood pressure increased [Unknown]
  - Wrong technique in product usage process [Unknown]
  - Blister [Unknown]
  - Swelling [Unknown]
  - Pruritus [Recovered/Resolved]
  - Pain [Recovered/Resolved]
  - Rash [Not Recovered/Not Resolved]
